FAERS Safety Report 4560059-8 (Version None)
Quarter: 2005Q1

REPORT INFORMATION
  Report Type: 
  Country: None (occurrence: None)
  Receive Date: 20050125
  Receipt Date: 20050113
  Transmission Date: 20050727
  Serious: Yes (Hospitalization)
  Sender: FDA-Public Use
  Company Number: JP-JNJFOC-20040600666

PATIENT
  Sex: Male

DRUGS (30)
  1. REMICADE [Suspect]
     Route: 041
     Dates: start: 20040430
  2. REMICADE [Suspect]
     Route: 041
     Dates: start: 20040430
  3. REMICADE [Suspect]
     Indication: RHEUMATOID ARTHRITIS
     Route: 041
     Dates: start: 20040430
  4. SOLU-MEDROL [Suspect]
     Indication: RHEUMATOID ARTHRITIS
     Route: 042
     Dates: start: 20040328, end: 20040330
  5. PREDNISOLONE [Suspect]
     Route: 049
  6. PREDNISOLONE [Suspect]
     Route: 049
  7. PREDNISOLONE [Suspect]
     Route: 049
  8. PREDNISOLONE [Suspect]
     Route: 049
  9. PREDNISOLONE [Suspect]
     Route: 049
  10. PREDNISOLONE [Suspect]
     Route: 049
  11. PREDNISOLONE [Suspect]
     Indication: RHEUMATOID ARTHRITIS
     Route: 049
  12. ENDOXAN [Suspect]
     Indication: RHEUMATOID ARTHRITIS
     Route: 042
     Dates: start: 20040401, end: 20040401
  13. RHEUMATREX [Concomitant]
     Route: 049
  14. RHEUMATREX [Concomitant]
     Route: 049
  15. RHEUMATREX [Concomitant]
     Route: 049
  16. RHEUMATREX [Concomitant]
     Indication: RHEUMATOID ARTHRITIS
     Route: 049
  17. ANPLAG [Concomitant]
     Route: 049
  18. PROCYLIN [Concomitant]
  19. MUCOSTA [Concomitant]
  20. MUCOSTA [Concomitant]
  21. GASTER [Concomitant]
  22. BAKTAR [Concomitant]
  23. BAKTAR [Concomitant]
  24. ISCOTIN [Concomitant]
     Dates: start: 20040429
  25. ASPIRIN [Concomitant]
  26. ALLOID G [Concomitant]
     Dates: start: 20040403
  27. ASPIRIN [Concomitant]
     Route: 049
  28. ARTIST [Concomitant]
     Route: 049
  29. RENIVACE [Concomitant]
     Route: 049
  30. LIPITOR [Concomitant]
     Route: 049

REACTIONS (9)
  - DRUG INTERACTION [None]
  - HOT FLUSH [None]
  - LEG AMPUTATION [None]
  - MYCOBACTERIUM KANSASII INFECTION [None]
  - PNEUMONIA [None]
  - PSEUDOMONAS INFECTION [None]
  - RASH [None]
  - STREPTOCOCCAL INFECTION [None]
  - WOUND INFECTION [None]
